FAERS Safety Report 10080625 (Version 2)
Quarter: 2014Q2

REPORT INFORMATION
  Report Type: Spontaneous
  Country: FR (occurrence: FR)
  Receive Date: 20140416
  Receipt Date: 20140609
  Transmission Date: 20141212
  Serious: Yes (Hospitalization)
  Sender: FDA-Public Use
  Company Number: FR-ROCHE-1380193

PATIENT
  Age: 51 Year
  Sex: Female

DRUGS (6)
  1. CELLCEPT [Suspect]
     Indication: NEPHROPATHY
     Dosage: 500MG
     Route: 048
     Dates: start: 201206, end: 20140215
  2. INEXIUM [Suspect]
     Indication: PRODUCT USED FOR UNKNOWN INDICATION
     Route: 048
     Dates: end: 201402
  3. CORTANCYL [Suspect]
     Indication: PRODUCT USED FOR UNKNOWN INDICATION
     Route: 048
     Dates: end: 20140215
  4. PLAQUENIL [Concomitant]
     Route: 048
     Dates: start: 20120807
  5. RAMIPRIL [Concomitant]
     Route: 048
     Dates: start: 20121212
  6. PARACETAMOL [Concomitant]

REACTIONS (1)
  - Agranulocytosis [Recovered/Resolved]
